FAERS Safety Report 5779796-2 (Version None)
Quarter: 2008Q2

REPORT INFORMATION
  Report Type: 
  Country: None (occurrence: None)
  Receive Date: 20080618
  Receipt Date: 20080604
  Transmission Date: 20081010
  Serious: Yes (Death, Hospitalization)
  Sender: FDA-Public Use
  Company Number: 107#08#2008-03034

PATIENT
  Age: 79 Year
  Sex: Female

DRUGS (3)
  1. AMIODARONE HCL [Suspect]
     Indication: ARRHYTHMIA
  2. AMIODARONE HCL [Suspect]
     Indication: ATRIAL FIBRILLATION
  3. ANTIVITAMIN K (ANTIVITAMIN K) [Concomitant]

REACTIONS (9)
  - AORTIC ARTERIOSCLEROSIS [None]
  - CYTOLYTIC HEPATITIS [None]
  - DISTURBANCE IN ATTENTION [None]
  - GASTROINTESTINAL NECROSIS [None]
  - HEPATIC NECROSIS [None]
  - HEPATITIS [None]
  - INTESTINAL INFARCTION [None]
  - MESENTERIC ARTERY STENOSIS [None]
  - MULTI-ORGAN FAILURE [None]
